FAERS Safety Report 4583547-7 (Version None)
Quarter: 2005Q1

REPORT INFORMATION
  Report Type: 
  Country: None (occurrence: None)
  Receive Date: 20050211
  Receipt Date: 20050204
  Transmission Date: 20050727
  Serious: Yes (Other)
  Sender: FDA-Public Use
  Company Number: 05SWZ0037

PATIENT
  Sex: Female

DRUGS (3)
  1. AGGRASTAT [Suspect]
     Indication: ACUTE CORONARY SYNDROME
     Dates: start: 20050201, end: 20050201
  2. ASPIRIN [Concomitant]
  3. HEPARIN [Concomitant]

REACTIONS (2)
  - MYOCARDIAL INFARCTION [None]
  - THROMBOCYTOPENIA [None]
